FAERS Safety Report 25275724 (Version 1)
Quarter: 2025Q2

REPORT INFORMATION
  Report Type: Spontaneous
  Country: US (occurrence: US)
  Receive Date: 20250507
  Receipt Date: 20250507
  Transmission Date: 20250717
  Serious: No
  Sender: SANDOZ
  Company Number: US-SANDOZ-SDZ2025US027269

PATIENT
  Age: 26 Year
  Sex: Female

DRUGS (1)
  1. GLATOPA [Suspect]
     Active Substance: GLATIRAMER ACETATE
     Indication: Product used for unknown indication
     Route: 065
     Dates: start: 20250428

REACTIONS (4)
  - Skin mass [Unknown]
  - Pain [Unknown]
  - Erythema [Unknown]
  - Swelling [Unknown]

NARRATIVE: CASE EVENT DATE: 20250429
